FAERS Safety Report 7983227-1 (Version None)
Quarter: 2011Q4

REPORT INFORMATION
  Report Type: 
  Country: None (occurrence: None)
  Receive Date: 20111215
  Receipt Date: 20111209
  Transmission Date: 20120403
  Serious: Yes (Hospitalization)
  Sender: FDA-Public Use
  Company Number: US-ABBOTT-11P-163-0856698-00

PATIENT
  Sex: Male
  Weight: 108.96 kg

DRUGS (2)
  1. PREDNISONE [Concomitant]
     Indication: RHEUMATOID ARTHRITIS
  2. HUMIRA [Suspect]
     Indication: RHEUMATOID ARTHRITIS

REACTIONS (11)
  - NERVOUS SYSTEM DISORDER [None]
  - TYPE 1 DIABETES MELLITUS [None]
  - DYSPNOEA [None]
  - RENAL FAILURE [None]
  - PNEUMONIA [None]
  - INTERSTITIAL LUNG DISEASE [None]
  - NERVE COMPRESSION [None]
  - HYPOAESTHESIA [None]
  - EMPHYSEMA [None]
  - UPPER RESPIRATORY TRACT INFECTION [None]
  - PAIN [None]
